FAERS Safety Report 6208749-5 (Version None)
Quarter: 2009Q2

REPORT INFORMATION
  Report Type: 
  Country: None (occurrence: None)
  Receive Date: 20090529
  Receipt Date: 20090430
  Transmission Date: 20091009
  Serious: Yes (Death)
  Sender: FDA-Public Use
  Company Number: US-ROCHE-634764

PATIENT
  Age: 53 Year
  Sex: Female
  Weight: 63.7 kg

DRUGS (3)
  1. CAPECITABINE [Suspect]
     Dosage: 1000 MG/M2, BID
     Route: 048
     Dates: start: 20081211
  2. ERLOTINIB [Suspect]
     Dosage: 100 MG, QD
     Route: 048
     Dates: start: 20081211
  3. GEMCITABINE [Suspect]
     Dosage: 750 MG/M2, 1/WEEK
     Route: 042
     Dates: start: 20081211

REACTIONS (1)
  - DISEASE PROGRESSION [None]
